FAERS Safety Report 10522713 (Version 2)
Quarter: 2014Q4

REPORT INFORMATION
  Report Type: Spontaneous
  Country: US (occurrence: US)
  Receive Date: 20141016
  Receipt Date: 20141016
  Transmission Date: 20150528
  Serious: Yes (Hospitalization, Disabling, Other)
  Sender: FDA-Public Use
  Company Number: US-ELI_LILLY_AND_COMPANY-US201410000330

PATIENT
  Age: 14 Year
  Sex: Female
  Weight: 46.3 kg

DRUGS (7)
  1. TADALAFIL [Suspect]
     Active Substance: TADALAFIL
     Indication: PULMONARY HYPERTENSION
     Dosage: 40 MG, EACH EVENING
     Route: 048
  2. REMODULIN [Suspect]
     Active Substance: TREPROSTINIL
     Dosage: UNK, UNKNOWN
     Route: 042
     Dates: start: 20140904
  3. REMODULIN [Suspect]
     Active Substance: TREPROSTINIL
     Dosage: 200 MG/KG/MIN
     Route: 058
     Dates: start: 20130417
  4. ASPIRIN. [Concomitant]
     Active Substance: ASPIRIN
     Dosage: UNK, UNKNOWN
     Route: 065
  5. REMODULIN [Suspect]
     Active Substance: TREPROSTINIL
     Indication: PULMONARY ARTERIAL HYPERTENSION
     Dosage: 181.2 MG/KG/MIN
     Route: 058
     Dates: start: 20130417
  6. AMBRISENTAN [Concomitant]
     Active Substance: AMBRISENTAN
     Indication: PULMONARY ARTERIAL HYPERTENSION
     Dosage: 10 MG, QD
     Route: 048
  7. SPIRONOLACTONE. [Concomitant]
     Active Substance: SPIRONOLACTONE
     Indication: CARDIAC FAILURE CHRONIC
     Dosage: 25 MG, QD
     Route: 048

REACTIONS (13)
  - Haemoptysis [Recovered/Resolved]
  - Haematemesis [Recovered/Resolved]
  - Pulmonary oedema [Unknown]
  - Vomiting [Recovered/Resolved]
  - Haemoglobin decreased [Unknown]
  - Respiratory failure [Unknown]
  - Hypoxia [Unknown]
  - Diarrhoea [Recovered/Resolved]
  - Seasonal allergy [Unknown]
  - Weight decreased [Unknown]
  - Pulmonary embolism [Unknown]
  - Syncope [Unknown]
  - Eczema [Unknown]

NARRATIVE: CASE EVENT DATE: 201408
